FAERS Safety Report 16403307 (Version 1)
Quarter: 2019Q2

REPORT INFORMATION
  Report Type: Spontaneous
  Country: SK (occurrence: SK)
  Receive Date: 20190607
  Receipt Date: 20190607
  Transmission Date: 20190711
  Serious: Yes (Hospitalization)
  Sender: FDA-Public Use
  Company Number: SK-TEVA-2019-SK-1059472

PATIENT
  Age: 59 Year
  Sex: Male
  Weight: 102 kg

DRUGS (6)
  1. TRIPLIXAM [Concomitant]
     Active Substance: AMLODIPINE BESYLATE\INDAPAMIDE\PERINDOPRIL ARGININE
     Indication: HYPERTENSION
     Dosage: 1 DOSAGE FORMS DAILY;
  2. FRAXIPARINE [Suspect]
     Active Substance: NADROPARIN CALCIUM
     Indication: THROMBOSIS PROPHYLAXIS
     Dosage: 0.6 ML
     Dates: start: 20190429, end: 20190502
  3. URAPIDIL STRAGEN [Concomitant]
     Indication: HYPERTENSION
     Dosage: 30 MILLIGRAM, 1-0-1
  4. SUMAMED [Suspect]
     Active Substance: AZITHROMYCIN ANHYDROUS
     Indication: ANTIBIOTIC PROPHYLAXIS
     Dosage: 500 MILLIGRAM
     Dates: start: 20190429, end: 20190501
  5. SORVASTA [Concomitant]
     Active Substance: ROSUVASTATIN CALCIUM
     Indication: HYPERLIPIDAEMIA
     Dosage: 10 MILLIGRAM DAILY;
  6. CONCOR [Concomitant]
     Active Substance: BISOPROLOL FUMARATE
     Indication: HYPERTENSION
     Dosage: 5 MILLIGRAM DAILY;

REACTIONS (2)
  - Hepatic enzyme increased [Recovering/Resolving]
  - Liver disorder [Recovering/Resolving]
